FAERS Safety Report 13142899 (Version 1)
Quarter: 2017Q1

REPORT INFORMATION
  Report Type: Spontaneous
  Country: IT (occurrence: IT)
  Receive Date: 20170124
  Receipt Date: 20170124
  Transmission Date: 20170428
  Serious: Yes (Hospitalization)
  Sender: FDA-Public Use
  Company Number: IT-MYLANLABS-2017M1003815

PATIENT

DRUGS (2)
  1. LAMOTRIGINE. [Suspect]
     Active Substance: LAMOTRIGINE
     Indication: PRODUCT USED FOR UNKNOWN INDICATION
     Dosage: 8 DF TOTAL
     Route: 048
  2. DIAZEPAM MYLAN [Suspect]
     Active Substance: DIAZEPAM
     Indication: EPILEPSY
     Dosage: UNK

REACTIONS (21)
  - Drug abuse [Unknown]
  - Overdose [Unknown]
  - Thirst [Unknown]
  - Generalised tonic-clonic seizure [Recovering/Resolving]
  - Protrusion tongue [Unknown]
  - Restlessness [Unknown]
  - Eye movement disorder [Unknown]
  - Hyperhidrosis [None]
  - Ataxia [Recovering/Resolving]
  - Bundle branch block right [Unknown]
  - Hyperphagia [Not Recovered/Not Resolved]
  - Loss of consciousness [Unknown]
  - Drug ineffective [Recovering/Resolving]
  - Toxicity to various agents [Recovering/Resolving]
  - Agitation [Unknown]
  - Malaise [Unknown]
  - Oculogyric crisis [Unknown]
  - Dystonia [Recovering/Resolving]
  - Sinus tachycardia [Recovering/Resolving]
  - Hyperhidrosis [Unknown]
  - Dysmetria [Unknown]
